FAERS Safety Report 10065512 (Version 1)
Quarter: 2014Q2

REPORT INFORMATION
  Report Type: Spontaneous
  Country: US (occurrence: US)
  Receive Date: 20140408
  Receipt Date: 20140408
  Transmission Date: 20141212
  Serious: Yes (Hospitalization)
  Sender: FDA-Public Use
  Company Number: US-B.I. PHARMACEUTICALS,INC./RIDGEFIELD-2014-BI-14815BP

PATIENT
  Age: 84 Year
  Sex: Female
  Weight: 59 kg

DRUGS (7)
  1. PRADAXA [Suspect]
     Indication: ATRIAL FIBRILLATION
     Dosage: 300 MG
     Route: 048
     Dates: start: 201202
  2. LISINOPRIL [Concomitant]
     Route: 065
  3. CARDIZEM [Concomitant]
     Route: 065
  4. CARBIDOPA/LEVODOPA [Concomitant]
     Route: 065
  5. AMANTADINE [Concomitant]
     Route: 065
  6. FUROSEMIDE [Concomitant]
     Route: 065
  7. SOTOLOL [Concomitant]
     Route: 065

REACTIONS (4)
  - Syncope [Recovered/Resolved]
  - Fatigue [Not Recovered/Not Resolved]
  - Dyspnoea [Not Recovered/Not Resolved]
  - Syncope [Recovered/Resolved]
